FAERS Safety Report 8153020-8 (Version None)
Quarter: 2012Q1

REPORT INFORMATION
  Report Type: 
  Country: None (occurrence: None)
  Receive Date: 20120221
  Receipt Date: 20120216
  Transmission Date: 20120608
  Serious: No
  Sender: FDA-Public Use
  Company Number: US-ENDO PHARMACEUTICALS INC.-PROP20120005

PATIENT
  Sex: Male

DRUGS (10)
  1. ZONEGRAN [Suspect]
     Route: 048
     Dates: start: 20090908
  2. ZONEGRAN [Suspect]
     Route: 048
     Dates: start: 20090710
  3. VALIUM [Suspect]
     Indication: PRODUCT USED FOR UNKNOWN INDICATION
     Route: 048
     Dates: start: 20090606
  4. PROPOXYPHENE NAPSYLATE/ACETAMINOPHEN 100MG/650MG [Suspect]
     Indication: PRODUCT USED FOR UNKNOWN INDICATION
     Dosage: UNKNOWN
     Route: 048
     Dates: start: 20090507, end: 20091004
  5. ZONEGRAN [Suspect]
     Route: 048
     Dates: start: 20090318
  6. ATIVAN [Suspect]
     Indication: ANXIETY DISORDER
     Route: 048
     Dates: start: 20090402
  7. ZONEGRAN [Suspect]
     Route: 048
     Dates: start: 20090418
  8. ACETAMINOPHEN [Suspect]
     Indication: PRODUCT USED FOR UNKNOWN INDICATION
     Dosage: UNKNOWN
     Route: 065
  9. ZONEGRAN [Suspect]
     Indication: PRODUCT USED FOR UNKNOWN INDICATION
     Route: 048
     Dates: start: 20090618
  10. ZONEGRAN [Suspect]
     Route: 048
     Dates: start: 20090522

REACTIONS (6)
  - DEPRESSION [None]
  - TOXICITY TO VARIOUS AGENTS [None]
  - OVERDOSE [None]
  - INTENTIONAL OVERDOSE [None]
  - SUICIDAL IDEATION [None]
  - COMPLETED SUICIDE [None]
